FAERS Safety Report 5378800-3 (Version None)
Quarter: 2007Q3

REPORT INFORMATION
  Report Type: 
  Country: None (occurrence: None)
  Receive Date: 20070705
  Receipt Date: 20070622
  Transmission Date: 20080115
  Serious: Yes (Other)
  Sender: FDA-Public Use
  Company Number: GB-SANOFI-SYNTHELABO-A01200706838

PATIENT
  Age: 58 Year
  Sex: Male

DRUGS (5)
  1. AMIODARONE [Concomitant]
     Indication: VENTRICULAR FIBRILLATION
     Route: 040
  2. ASPIRIN [Suspect]
     Indication: ACUTE MYOCARDIAL INFARCTION
     Dosage: 300 MG ONCE FOLLOWED BY AN UNSPECIFIED DAILY DOSE
     Route: 048
  3. CLOPIDOGREL [Suspect]
     Indication: ACUTE MYOCARDIAL INFARCTION
     Dosage: 600 MG ONCE FOLLOWED BY AN UNSPECIFIED DAILY DOSE
     Route: 048
  4. TENECTEPLASE [Suspect]
     Indication: ACUTE MYOCARDIAL INFARCTION
     Dosage: UNK
     Route: 065
  5. ENOXAPARIN SODIUM [Suspect]
     Indication: ACUTE MYOCARDIAL INFARCTION
     Dosage: UNK
     Route: 058

REACTIONS (7)
  - CARDIAC ARREST [None]
  - EPISTAXIS [None]
  - HAEMATEMESIS [None]
  - OBSTRUCTIVE AIRWAYS DISORDER [None]
  - OVERDOSE [None]
  - SWOLLEN TONGUE [None]
  - TONGUE HAEMORRHAGE [None]
